FAERS Safety Report 9127944 (Version 1)
Quarter: 2013Q1

REPORT INFORMATION
  Report Type: Spontaneous
  Country: US (occurrence: US)
  Receive Date: 20130228
  Receipt Date: 20130228
  Transmission Date: 20140127
  Serious: No
  Sender: FDA-Public Use
  Company Number: US-BRISTOL-MYERS SQUIBB COMPANY-17165044

PATIENT
  Age: 54 Year
  Sex: Male

DRUGS (2)
  1. KOMBIGLYZE XR [Suspect]
     Dosage: 2.5/1000, PRESCRIBED 2.5/1000 TWICE DAILY
  2. LISINOPRIL [Concomitant]

REACTIONS (1)
  - Diarrhoea [Not Recovered/Not Resolved]
